APPROVED DRUG PRODUCT: AZITHROMYCIN
Active Ingredient: AZITHROMYCIN
Strength: EQ 250MG BASE
Dosage Form/Route: TABLET;ORAL
Application: A211317 | Product #001
Applicant: YUNG SHIN PHARMACEUTICAL INDUSTRIAL CO LTD
Approved: Jul 26, 2022 | RLD: No | RS: No | Type: DISCN